FAERS Safety Report 19099954 (Version 1)
Quarter: 2021Q2

REPORT INFORMATION
  Report Type: Spontaneous
  Country: US (occurrence: US)
  Receive Date: 20210407
  Receipt Date: 20210407
  Transmission Date: 20210717
  Serious: No
  Sender: FDA-Public Use
  Company Number: US-APOTEX-2021AP008697

PATIENT
  Age: 50 Year
  Sex: Female

DRUGS (2)
  1. FLUOXETINE [Suspect]
     Active Substance: FLUOXETINE HYDROCHLORIDE
     Indication: PREMENSTRUAL SYNDROME
     Dosage: UNK
     Route: 065
  2. PAROXETINE. [Suspect]
     Active Substance: PAROXETINE
     Indication: STRESS AT WORK
     Dosage: 10 MG
     Route: 065

REACTIONS (19)
  - Muscle spasms [Recovered/Resolved]
  - Anxiety [Recovered/Resolved]
  - Insomnia [Recovered/Resolved]
  - Depersonalisation/derealisation disorder [Recovered/Resolved]
  - Palpitations [Recovered/Resolved]
  - Apathy [Recovered/Resolved]
  - Temperature intolerance [Recovered/Resolved]
  - Disorientation [Recovered/Resolved]
  - Drug withdrawal syndrome [Recovered/Resolved]
  - Dyspepsia [Recovered/Resolved]
  - Panic attack [Recovered/Resolved]
  - Myalgia [Recovered/Resolved]
  - Housebound [Recovered/Resolved]
  - Impaired work ability [Recovered/Resolved]
  - Hypomania [Recovered/Resolved]
  - Hyperhidrosis [Recovered/Resolved]
  - Sexual dysfunction [Recovered/Resolved]
  - Feeling abnormal [Recovered/Resolved]
  - Crying [Recovered/Resolved]
